FAERS Safety Report 7078365-4 (Version None)
Quarter: 2010Q4

REPORT INFORMATION
  Report Type: 
  Country: None (occurrence: None)
  Receive Date: 20101102
  Receipt Date: 20101027
  Transmission Date: 20110411
  Serious: Yes (Other)
  Sender: FDA-Public Use
  Company Number: US-BAYER-US-SHR-03-014638

PATIENT
  Age: 56 Year
  Sex: Female
  Weight: 69 kg

DRUGS (3)
  1. BETASERON [Suspect]
     Indication: RELAPSING-REMITTING MULTIPLE SCLEROSIS
     Dosage: TOTAL DAILY DOSE: 8 MIU
     Route: 058
     Dates: start: 20030401, end: 20030101
  2. COPAXONE [Concomitant]
  3. TYSABRI [Concomitant]

REACTIONS (5)
  - BONE MARROW DISORDER [None]
  - FATIGUE [None]
  - HAEMATOCRIT DECREASED [None]
  - HAEMOGLOBIN DECREASED [None]
  - RED BLOOD CELL COUNT DECREASED [None]
